FAERS Safety Report 7862240-9 (Version None)
Quarter: 2011Q4

REPORT INFORMATION
  Report Type: 
  Country: None (occurrence: None)
  Receive Date: 20111027
  Receipt Date: 20101102
  Transmission Date: 20120403
  Serious: No
  Sender: FDA-Public Use
  Company Number: US-AMGEN-USASP2010003531

PATIENT
  Age: 33 Year
  Sex: Female
  Weight: 43.084 kg

DRUGS (7)
  1. FOLIC ACID [Concomitant]
     Dosage: 200 MG, UNK
  2. METHOTREXATE [Concomitant]
     Dosage: 2.5 MG, UNK
  3. FERROUS SULFATE TAB [Concomitant]
     Dosage: 325 MG, UNK
  4. FLOVENT [Concomitant]
     Dosage: 110 MG, UNK
  5. ENBREL [Suspect]
     Indication: PRODUCT USED FOR UNKNOWN INDICATION
     Dosage: 50 MG, QWK
  6. PREDNISONE [Concomitant]
     Dosage: 1 MG, UNK
  7. ALBUTEROL [Concomitant]
     Dosage: 90 MG, UNK

REACTIONS (3)
  - ALOPECIA [None]
  - DIZZINESS [None]
  - NAUSEA [None]
